FAERS Safety Report 4375158-3 (Version None)
Quarter: 2004Q2

REPORT INFORMATION
  Report Type: 
  Country: None (occurrence: None)
  Receive Date: 20040603
  Receipt Date: 20040518
  Transmission Date: 20050107
  Serious: Yes (Hospitalization)
  Sender: FDA-Public Use
  Company Number: NL-JNJFOC-20040501570

PATIENT
  Age: 26 Year
  Sex: Female

DRUGS (8)
  1. REMICADE [Suspect]
     Indication: RHEUMATOID ARTHRITIS
     Dosage: 3 MG/KG, INTRAVENOUS; SEE IMAGE
     Route: 042
     Dates: start: 20030626, end: 20030807
  2. REMICADE [Suspect]
     Indication: RHEUMATOID ARTHRITIS
     Dosage: 3 MG/KG, INTRAVENOUS; SEE IMAGE
     Route: 042
     Dates: start: 20040309, end: 20040504
  3. REMICADE [Suspect]
     Indication: RHEUMATOID ARTHRITIS
     Dosage: 3 MG/KG, INTRAVENOUS; SEE IMAGE
     Route: 042
     Dates: start: 20040504, end: 20040504
  4. METHOTREXATE [Concomitant]
  5. FOLIC ACID [Concomitant]
  6. MOVICOX (MELOXICAM) [Concomitant]
  7. OMEPRAZOLE [Concomitant]
  8. PREDNISONE [Concomitant]

REACTIONS (4)
  - DYSPNOEA [None]
  - ERYTHEMA [None]
  - INFUSION RELATED REACTION [None]
  - PYREXIA [None]
